FAERS Safety Report 6616152-9 (Version None)
Quarter: 2010Q1

REPORT INFORMATION
  Report Type: 
  Country: None (occurrence: None)
  Receive Date: 20100305
  Receipt Date: 20100222
  Transmission Date: 20100710
  Serious: Yes (Other)
  Sender: FDA-Public Use
  Company Number: JP-PFIZER INC-2010019058

PATIENT
  Age: 39 Year
  Sex: Male

DRUGS (4)
  1. CHAMPIX [Suspect]
     Indication: SMOKING CESSATION THERAPY
     Dosage: .5 MG, 1X/DAY
     Route: 048
     Dates: start: 20100201, end: 20100202
  2. CHAMPIX [Suspect]
     Indication: NICOTINE DEPENDENCE
     Dosage: 1.0 MG, 1X/DAY
     Route: 048
     Dates: start: 20100203, end: 20100204
  3. GASTER [Concomitant]
     Indication: GASTRIC ULCER
     Dosage: UNK
     Route: 048
     Dates: start: 20060711
  4. DOGMATYL [Concomitant]
     Indication: NEUROSIS
     Dosage: UNK
     Route: 048
     Dates: start: 20090117, end: 20100201

REACTIONS (4)
  - DEPRESSED LEVEL OF CONSCIOUSNESS [None]
  - FEELING ABNORMAL [None]
  - NAUSEA [None]
  - VISION BLURRED [None]
